FAERS Safety Report 5905074-4 (Version None)
Quarter: 2008Q3

REPORT INFORMATION
  Report Type: 
  Country: None (occurrence: None)
  Receive Date: 20080909
  Receipt Date: 20071218
  Transmission Date: 20090109
  Serious: Yes (Death)
  Sender: FDA-Public Use
  Company Number: 163-20785-07110898

PATIENT
  Age: 71 Year
  Sex: Male

DRUGS (2)
  1. THALOMID [Suspect]
     Indication: MULTIPLE MYELOMA
     Dosage: 100MG QAM, 50MG QPM, ORAL
     Route: 048
     Dates: start: 20070702, end: 20071112
  2. THALOMID [Suspect]

REACTIONS (1)
  - CARDIAC FAILURE CONGESTIVE [None]
